FAERS Safety Report 6065700-9 (Version None)
Quarter: 2009Q1

REPORT INFORMATION
  Report Type: 
  Country: None (occurrence: None)
  Receive Date: 20090130
  Receipt Date: 20081223
  Transmission Date: 20090719
  Serious: Yes (Death, Hospitalization)
  Sender: FDA-Public Use
  Company Number: ITPFP-S-20080004

PATIENT
  Age: 46 Year
  Sex: Female

DRUGS (3)
  1. NAVELBINE [Suspect]
     Indication: BREAST CANCER METASTATIC
     Dosage: 42 MG IV
     Route: 042
     Dates: start: 20080226
  2. HERCEPTIN [Suspect]
     Indication: BREAST CANCER METASTATIC
     Dosage: 6 MG/KG
     Dates: start: 20070901, end: 20071101
  3. HERCEPTIN [Suspect]
     Indication: BREAST CANCER METASTATIC
     Dosage: 239 MG
     Dates: start: 20080226

REACTIONS (17)
  - ARTERIOSCLEROSIS [None]
  - CARDIOPULMONARY FAILURE [None]
  - CLONUS [None]
  - CONFUSIONAL STATE [None]
  - CONVULSION [None]
  - DIFFUSE ALVEOLAR DAMAGE [None]
  - ENCEPHALITIS [None]
  - METASTASES TO CHEST WALL [None]
  - METASTASES TO HEART [None]
  - MUSCULOSKELETAL CHEST PAIN [None]
  - NECROSIS [None]
  - NEUTROPENIA [None]
  - PNEUMONIA [None]
  - RESPIRATORY FAILURE [None]
  - SEPTIC SHOCK [None]
  - SOMNOLENCE [None]
  - TRISMUS [None]
